FAERS Safety Report 8486839-4 (Version None)
Quarter: 2012Q3

REPORT INFORMATION
  Report Type: 
  Country: None (occurrence: None)
  Receive Date: 20120704
  Receipt Date: 20120620
  Transmission Date: 20120928
  Serious: Yes (Other)
  Sender: FDA-Public Use
  Company Number: DE-RANBAXY-2012RR-57467

PATIENT
  Sex: Female
  Weight: 70 kg

DRUGS (3)
  1. PANTOPRAZOLE SODIUM [Concomitant]
     Indication: PRODUCT USED FOR UNKNOWN INDICATION
     Dosage: 20 MG, QD
     Route: 005
     Dates: start: 20100927, end: 20120620
  2. VOLTAREN RESINAT 20 KAP [Concomitant]
     Indication: PRODUCT USED FOR UNKNOWN INDICATION
     Dosage: UNK, PRN
     Route: 065
     Dates: start: 20100927, end: 20120620
  3. SIMVASTATIN [Suspect]
     Indication: HYPERCHOLESTEROLAEMIA
     Dosage: 40 MG, QD
     Route: 065
     Dates: start: 20120616, end: 20120620

REACTIONS (5)
  - VISUAL FIELD DEFECT [None]
  - RASH PRURITIC [None]
  - ERYTHEMA [None]
  - HYPOAESTHESIA [None]
  - SKIN EXFOLIATION [None]
